FAERS Safety Report 5082509-3 (Version None)
Quarter: 2006Q3

REPORT INFORMATION
  Report Type: 
  Country: None (occurrence: None)
  Receive Date: 20060817
  Receipt Date: 20060810
  Transmission Date: 20061208
  Serious: Yes (Hospitalization)
  Sender: FDA-Public Use
  Company Number: US-MERCK-0608USA02711

PATIENT
  Age: 72 Year
  Sex: Female

DRUGS (3)
  1. COZAAR [Suspect]
     Route: 048
  2. METOPROLOL [Suspect]
     Route: 048
  3. ACENOCOUMAROL [Suspect]
     Route: 065

REACTIONS (3)
  - ATRIAL FIBRILLATION [None]
  - HYPERTENSION [None]
  - SICK SINUS SYNDROME [None]
